FAERS Safety Report 8304394-6 (Version None)
Quarter: 2012Q2

REPORT INFORMATION
  Report Type: 
  Country: None (occurrence: None)
  Receive Date: 20120423
  Receipt Date: 20120416
  Transmission Date: 20120825
  Serious: No
  Sender: FDA-Public Use
  Company Number: US-PFIZER INC-2012094898

PATIENT
  Sex: Female

DRUGS (3)
  1. ZOLOFT [Suspect]
     Dosage: UNK, 3X/DAY
  2. EFFEXOR XR [Suspect]
     Dosage: UNK
  3. PRISTIQ [Suspect]
     Dosage: UNK

REACTIONS (5)
  - MOOD SWINGS [None]
  - ABNORMAL DREAMS [None]
  - NAUSEA [None]
  - WITHDRAWAL SYNDROME [None]
  - ABDOMINAL PAIN UPPER [None]
